FAERS Safety Report 10364111 (Version 2)
Quarter: 2014Q3

REPORT INFORMATION
  Report Type: Spontaneous
  Country: JP (occurrence: JP)
  Receive Date: 20140806
  Receipt Date: 20140806
  Transmission Date: 20150326
  Serious: Yes (Death, Life-Threatening)
  Sender: FDA-Public Use
  Company Number: JP-ROCHE-1435679

PATIENT
  Age: 68 Year
  Sex: Female
  Weight: 50 kg

DRUGS (2)
  1. AVASTIN [Suspect]
     Active Substance: BEVACIZUMAB
     Indication: FALLOPIAN TUBE CANCER METASTATIC
     Dosage: TREATMENT LINE: 9TH  COMPLETED TREATMENT CYCLE NUMBER: 4.
     Route: 041
     Dates: start: 20140404
  2. AVASTIN [Suspect]
     Active Substance: BEVACIZUMAB
     Indication: FALLOPIAN TUBE CANCER METASTATIC
     Dosage: TREATMENT LINE: 8TH  COMPLETED TREATMENT CYCLE NUMBER: 4.
     Route: 041
     Dates: start: 20140205

REACTIONS (3)
  - Large intestine perforation [Not Recovered/Not Resolved]
  - Disease progression [Fatal]
  - Multi-organ failure [Fatal]

NARRATIVE: CASE EVENT DATE: 20140704
